FAERS Safety Report 6086230-4 (Version None)
Quarter: 2009Q1

REPORT INFORMATION
  Report Type: 
  Country: None (occurrence: None)
  Receive Date: 20090220
  Receipt Date: 20090210
  Transmission Date: 20090719
  Serious: Yes (Hospitalization)
  Sender: FDA-Public Use
  Company Number: US-JNJFOC-20090202752

PATIENT
  Sex: Female
  Weight: 52.8 kg

DRUGS (4)
  1. REMICADE [Suspect]
     Route: 042
  2. REMICADE [Suspect]
     Indication: INFLAMMATORY BOWEL DISEASE
     Route: 042
  3. CIPROFLOXACIN [Concomitant]
  4. CERTOLIZUMAB [Concomitant]

REACTIONS (2)
  - PYODERMA GANGRENOSUM [None]
  - STAPHYLOCOCCAL INFECTION [None]
